FAERS Safety Report 6984648 (Version 4)
Quarter: 2013Q1

REPORT INFORMATION
  Report Type: Spontaneous
  Country: GB (occurrence: GB)
  Receive Date: 20090501
  Receipt Date: 20130327
  Transmission Date: 20140127
  Serious: Yes (Life-Threatening, Other)
  Sender: FDA-Public Use
  Company Number: GB-ALEXION-A200800201

PATIENT
  Sex: Female

DRUGS (5)
  1. SOLIRIS [Suspect]
     Indication: PAROXYSMAL NOCTURNAL HAEMOGLOBINURIA
     Dates: start: 20051010, end: 20071015
  2. SOLIRIS [Suspect]
     Dosage: UNK, SINGLE
     Route: 042
     Dates: start: 20080711, end: 20080711
  3. SOLIRIS [Suspect]
     Dosage: 900 MG, SINGLE
     Route: 042
  4. SOLIRIS [Suspect]
     Dosage: 900 MG, NORMAL MAINTENANCE DOSING
  5. HEPARIN [Concomitant]
     Indication: ANTICOAGULANT THERAPY

REACTIONS (5)
  - Retained placenta or membranes [Unknown]
  - Uterine haemorrhage [Unknown]
  - Portal vein thrombosis [Unknown]
  - Haemolysis [Unknown]
  - Foetal exposure during pregnancy [Not Recovered/Not Resolved]
